FAERS Safety Report 7200106-8 (Version None)
Quarter: 2010Q4

REPORT INFORMATION
  Report Type: 
  Country: None (occurrence: None)
  Receive Date: 20101214
  Receipt Date: 20101207
  Transmission Date: 20110411
  Serious: Yes (Hospitalization)
  Sender: FDA-Public Use
  Company Number: IDA-00460

PATIENT
  Age: 18 Year
  Sex: Male

DRUGS (1)
  1. PROPRANOLOL [Suspect]
     Indication: PRODUCT USED FOR UNKNOWN INDICATION
     Dosage: 80 MG ONCE, ORAL FORMULATION
     Route: 048

REACTIONS (7)
  - BRADYCARDIA [None]
  - CARDIO-RESPIRATORY ARREST [None]
  - CONVULSION [None]
  - FALL [None]
  - FEELING HOT [None]
  - HUNGER [None]
  - LOSS OF CONSCIOUSNESS [None]
